FAERS Safety Report 16054230 (Version 2)
Quarter: 2019Q1

REPORT INFORMATION
  Report Type: Spontaneous
  Country: CH (occurrence: CH)
  Receive Date: 20190308
  Receipt Date: 20190308
  Transmission Date: 20190418
  Serious: Yes (Other)
  Sender: FDA-Public Use
  Company Number: PHHY2019CH049813

PATIENT
  Age: 71 Year

DRUGS (1)
  1. CO-VALSARTAN SANDOZ [Suspect]
     Active Substance: HYDROCHLOROTHIAZIDE\VALSARTAN
     Indication: PRODUCT USED FOR UNKNOWN INDICATION
     Dosage: DOSE 160/12.5, UNITS UNKNOWN
     Route: 065

REACTIONS (1)
  - Skin cancer [Unknown]
